FAERS Safety Report 25515897 (Version 2)
Quarter: 2025Q3

REPORT INFORMATION
  Report Type: Report from Study
  Country: US (occurrence: US)
  Receive Date: 20250704
  Receipt Date: 20250708
  Transmission Date: 20251020
  Serious: Yes (Death, Hospitalization, Other)
  Sender: ULTRAGENYX PHARMACEUTICAL
  Company Number: US-ULTRAGENYX PHARMACEUTICAL INC.-US-UGX-25-00656

PATIENT
  Sex: Female

DRUGS (2)
  1. DOJOLVI [Suspect]
     Active Substance: TRIHEPTANOIN
     Indication: Fatty acid oxidation disorder
     Route: 050
     Dates: start: 20221019
  2. DOJOLVI [Suspect]
     Active Substance: TRIHEPTANOIN
     Indication: Hypertrophic cardiomyopathy

REACTIONS (7)
  - Death [Fatal]
  - Cardiac failure [Unknown]
  - Renal impairment [Unknown]
  - Pulmonary oedema [Unknown]
  - Pleural effusion [Unknown]
  - Endotracheal intubation [Unknown]
  - Off label use [Unknown]
